FAERS Safety Report 24780819 (Version 1)
Quarter: 2024Q4

REPORT INFORMATION
  Report Type: Spontaneous
  Country: ES (occurrence: ES)
  Receive Date: 20241227
  Receipt Date: 20241227
  Transmission Date: 20250115
  Serious: Yes (Hospitalization)
  Sender: AMGEN
  Company Number: ES-ROCHE-1736478

PATIENT
  Age: 71 Year
  Sex: Female
  Weight: 56 kg

DRUGS (11)
  1. TRASTUZUMAB [Suspect]
     Active Substance: TRASTUZUMAB
     Indication: HER2 positive breast cancer
     Dosage: 348 MILLIGRAM, Q3WK (LOADING DOSE)
     Route: 040
     Dates: start: 20130823
  2. Pritor [Concomitant]
     Dosage: 40 MILLIGRAM
     Dates: start: 201304
  3. SERTRALINE HYDROCHLORIDE [Concomitant]
     Active Substance: SERTRALINE HYDROCHLORIDE
     Dosage: 50 MILLIGRAM
     Dates: start: 20130809
  4. SERTRALINE HYDROCHLORIDE [Concomitant]
     Active Substance: SERTRALINE HYDROCHLORIDE
     Dosage: 25 MILLIGRAM
  5. LORAZEPAM [Concomitant]
     Active Substance: LORAZEPAM
     Dosage: 1 MILLIGRAM
     Dates: start: 1993, end: 201507
  6. BISOPROLOL [Concomitant]
     Active Substance: BISOPROLOL
     Dosage: 2 MILLIGRAM
  7. BISOPROLOL [Concomitant]
     Active Substance: BISOPROLOL
     Dosage: 5 MILLIGRAM
  8. ROSUVASTATIN [Concomitant]
     Active Substance: ROSUVASTATIN
     Dosage: 5 MILLIGRAM
  9. FORMOTEROL [Concomitant]
     Active Substance: FORMOTEROL
  10. BUDESONIDE [Concomitant]
     Active Substance: BUDESONIDE
  11. FUROSEMIDE [Concomitant]
     Active Substance: FUROSEMIDE
     Dosage: 40 MILLIGRAM

REACTIONS (4)
  - Cardiac failure [Recovered/Resolved]
  - Mitral valve incompetence [Recovered/Resolved]
  - Aortic stenosis [Recovered/Resolved]
  - Tricuspid valve incompetence [Recovered/Resolved]

NARRATIVE: CASE EVENT DATE: 20221031
